FAERS Safety Report 26203909 (Version 1)
Quarter: 2025Q4

REPORT INFORMATION
  Report Type: Spontaneous
  Country: US (occurrence: None)
  Receive Date: 20251224
  Receipt Date: 20251224
  Transmission Date: 20260117
  Serious: Yes (Hospitalization, Disabling, Other)
  Sender: FDA-CTU
  Company Number: None

PATIENT
  Age: 63 Year
  Sex: Female

DRUGS (2)
  1. VYVGART [Suspect]
     Active Substance: EFGARTIGIMOD ALFA-FCAB
     Indication: Chronic inflammatory demyelinating polyradiculoneuropathy
     Dosage: 1 X PER WEEK SUBCUTANEOUS
     Route: 058
     Dates: start: 20250719, end: 20250809
  2. VYVGART [Suspect]
     Active Substance: EFGARTIGIMOD ALFA-FCAB
     Indication: Chronic inflammatory demyelinating polyradiculoneuropathy
     Dosage: SUBCUTANEOUS
     Route: 058
     Dates: start: 20250719, end: 20250809

REACTIONS (9)
  - Feeling abnormal [None]
  - Diplopia [None]
  - Eye disorder [None]
  - Loss of personal independence in daily activities [None]
  - Fall [None]
  - Rib fracture [None]
  - General physical health deterioration [None]
  - Mental impairment [None]
  - Impaired driving ability [None]

NARRATIVE: CASE EVENT DATE: 20250809
